FAERS Safety Report 18597089 (Version 1)
Quarter: 2020Q4

REPORT INFORMATION
  Report Type: Spontaneous
  Country: HU (occurrence: HU)
  Receive Date: 20201209
  Receipt Date: 20201209
  Transmission Date: 20210114
  Serious: Yes (Other)
  Sender: FDA-Public Use
  Company Number: HU-MYLANLABS-2020M1099892

PATIENT
  Sex: Female

DRUGS (4)
  1. BEVACIZUMAB. [Concomitant]
     Active Substance: BEVACIZUMAB
     Indication: BREAST CANCER
     Dosage: UNK (8 TIMES)
     Route: 065
     Dates: start: 201805, end: 201903
  2. ZOLEDRONIC ACID [Suspect]
     Active Substance: ZOLEDRONIC ACID
     Indication: BREAST CANCER
     Dosage: 4 MILLIGRAM, Q28D (4 MG, Q4W)
     Route: 065
     Dates: start: 2018
  3. PACLITAXEL. [Suspect]
     Active Substance: PACLITAXEL
     Indication: BREAST CANCER
     Dosage: UNK (6 TIMES)
     Route: 065
     Dates: start: 201805, end: 201808
  4. CARBOPLATIN. [Suspect]
     Active Substance: CARBOPLATIN
     Indication: BREAST CANCER
     Dosage: UNK (6 TIMES)
     Route: 065
     Dates: start: 201805, end: 201808

REACTIONS (6)
  - Malignant neoplasm progression [Unknown]
  - Breast cancer [Unknown]
  - Neutropenia [Unknown]
  - Eastern Cooperative Oncology Group performance status worsened [Unknown]
  - Metastases to lung [Unknown]
  - Product use in unapproved indication [Unknown]

NARRATIVE: CASE EVENT DATE: 201904
